FAERS Safety Report 7307611-4 (Version None)
Quarter: 2011Q1

REPORT INFORMATION
  Report Type: 
  Country: None (occurrence: None)
  Receive Date: 20110223
  Receipt Date: 20110214
  Transmission Date: 20110831
  Serious: Yes (Hospitalization, Other)
  Sender: FDA-Public Use
  Company Number: ES-CELGENEUS-144-C5013-10112162

PATIENT
  Sex: Male
  Weight: 66.7 kg

DRUGS (17)
  1. CC-5013 [Suspect]
     Route: 048
     Dates: start: 20101021, end: 20110105
  2. METAMIZOLE [Concomitant]
     Route: 048
     Dates: start: 20100527
  3. ENALAPRIL MALEATE [Concomitant]
     Indication: HYPERTENSION
     Route: 048
     Dates: start: 20100222, end: 20101215
  4. LACTULOSA [Concomitant]
     Indication: CONSTIPATION PROPHYLAXIS
     Route: 048
     Dates: start: 20100317
  5. DURAGESIC-100 [Concomitant]
     Route: 062
     Dates: start: 20100527
  6. TELMISARTAN [Concomitant]
     Indication: HYPERTENSION
     Route: 048
     Dates: start: 20100317
  7. CC-5013 [Suspect]
     Indication: MULTIPLE MYELOMA
     Route: 048
     Dates: start: 20100309
  8. NOVOMIX30 [Concomitant]
     Indication: DIABETES MELLITUS
     Route: 030
     Dates: start: 20100701
  9. ASPIRIN [Concomitant]
     Indication: THROMBOSIS PROPHYLAXIS
     Route: 048
     Dates: start: 20100820, end: 20110110
  10. SIMVASTATIN [Concomitant]
     Route: 048
     Dates: start: 20100228, end: 20101215
  11. EPREX [Concomitant]
     Route: 058
     Dates: start: 20101020, end: 20101117
  12. DEXAMETHASONE [Suspect]
     Indication: MULTIPLE MYELOMA
     Route: 065
     Dates: start: 20100309
  13. ASPIRIN [Concomitant]
     Route: 048
     Dates: start: 20110119
  14. NOVOMIX 50 [Concomitant]
     Indication: DIABETES MELLITUS
     Route: 030
     Dates: start: 20100701
  15. DEXAMETHASONE [Suspect]
     Route: 065
     Dates: start: 20101021, end: 20110106
  16. OMEPRAZOLE [Concomitant]
     Indication: PROPHYLAXIS
     Route: 048
     Dates: start: 20100309
  17. NOVORAPID [Concomitant]
     Indication: DIABETES MELLITUS
     Route: 030
     Dates: start: 20100711

REACTIONS (1)
  - MALIGNANT NEOPLASM OF RENAL PELVIS [None]
